FAERS Safety Report 13276392 (Version 1)
Quarter: 2017Q1

REPORT INFORMATION
  Report Type: Spontaneous
  Country: GB (occurrence: GB)
  Receive Date: 20170228
  Receipt Date: 20170228
  Transmission Date: 20170428
  Serious: Yes (Other)
  Sender: FDA-Public Use
  Company Number: GB-SUN PHARMACEUTICAL INDUSTRIES LTD-2017R1-134515

PATIENT
  Sex: Female

DRUGS (2)
  1. PAMIDRONATE [Suspect]
     Active Substance: PAMIDRONATE DISODIUM
     Indication: FOOT FRACTURE
     Dosage: 1MG/KG ON THREE CONSECUTIVE DAYS, 3 MONTHLY; 4 CYCLES (TOTAL DOSE 12MG/KG)
     Route: 065
  2. PAMIDRONATE [Suspect]
     Active Substance: PAMIDRONATE DISODIUM
     Indication: TIBIA FRACTURE

REACTIONS (2)
  - Tibia fracture [Unknown]
  - Fibula fracture [Unknown]
